FAERS Safety Report 6742508-X (Version None)
Quarter: 2010Q2

REPORT INFORMATION
  Report Type: 
  Country: None (occurrence: None)
  Receive Date: 20100524
  Receipt Date: 20100513
  Transmission Date: 20101027
  Serious: Yes (Death, Hospitalization)
  Sender: FDA-Public Use
  Company Number: 99857

PATIENT
  Age: 82 Year
  Sex: Male
  Weight: 68 kg

DRUGS (1)
  1. LEUCOVIRIN CALCIUM             - BEDFORD LABS, INC. [Suspect]
     Indication: COLORECTAL CANCER METASTATIC
     Dosage: 730.4 MG/IV
     Route: 042
     Dates: start: 20080318, end: 20080820

REACTIONS (3)
  - ASTHENIA [None]
  - ORGANISING PNEUMONIA [None]
  - RESPIRATORY FAILURE [None]
